FAERS Safety Report 10038538 (Version 2)
Quarter: 2014Q1

REPORT INFORMATION
  Report Type: Spontaneous
  Country: US (occurrence: US)
  Receive Date: 20140326
  Receipt Date: 20140331
  Transmission Date: 20141002
  Serious: Yes (Hospitalization, Other)
  Sender: FDA-Public Use
  Company Number: US-BAYER-2014-041930

PATIENT
  Age: 34 Year
  Sex: Female

DRUGS (1)
  1. CLIMARA [Suspect]
     Dosage: UNK
     Dates: start: 1994

REACTIONS (51)
  - Functional gastrointestinal disorder [None]
  - Application site rash [None]
  - Application site vesicles [None]
  - Palpitations [None]
  - Hypertension [None]
  - Myalgia [None]
  - Anxiety [None]
  - Depression [None]
  - Influenza like illness [None]
  - Tachycardia [None]
  - Blood corticotrophin decreased [None]
  - Blood prolactin increased [None]
  - Leukoencephalopathy [None]
  - Hot flush [None]
  - Bone pain [None]
  - Musculoskeletal stiffness [None]
  - Mental status changes [None]
  - Heart rate irregular [None]
  - Drug effect decreased [None]
  - Contusion [None]
  - Reye^s syndrome [None]
  - Genetic polymorphism [None]
  - Sjogren^s syndrome [None]
  - Systemic lupus erythematosus [None]
  - Chest pain [None]
  - Intermittent claudication [None]
  - Gastrointestinal disorder [None]
  - Benign breast neoplasm [None]
  - Brain neoplasm benign [None]
  - Pituitary tumour benign [None]
  - Thyroid cyst [None]
  - Muscle spasms [None]
  - Hypoaesthesia [None]
  - Paraesthesia [None]
  - Abdominal distension [None]
  - Weight decreased [None]
  - Decreased appetite [None]
  - Vision blurred [None]
  - Tunnel vision [None]
  - Blindness [None]
  - Muscular weakness [None]
  - Tremor [None]
  - Hallucination [None]
  - Psychotic disorder [None]
  - Hot flush [None]
  - Cerebrovascular accident [None]
  - Speech disorder [None]
  - Confusional state [None]
  - Memory impairment [None]
  - Disturbance in attention [None]
  - Withdrawal syndrome [None]
